APPROVED DRUG PRODUCT: ERYTHROMYCIN ETHYLSUCCINATE
Active Ingredient: ERYTHROMYCIN ETHYLSUCCINATE
Strength: EQ 200MG BASE/5ML
Dosage Form/Route: SUSPENSION;ORAL
Application: A062559 | Product #001
Applicant: PHARMAFAIR INC
Approved: Mar 15, 1985 | RLD: No | RS: No | Type: DISCN